FAERS Safety Report 17146024 (Version 1)
Quarter: 2019Q4

REPORT INFORMATION
  Report Type: Spontaneous
  Country: CA (occurrence: CA)
  Receive Date: 20191212
  Receipt Date: 20191212
  Transmission Date: 20200122
  Serious: Yes (Other)
  Sender: FDA-Public Use
  Company Number: CA-COVIS PHARMA B.V.-2019COV00315

PATIENT
  Age: 73 Year
  Sex: Female

DRUGS (9)
  1. OMNARIS [Suspect]
     Active Substance: CICLESONIDE
     Route: 045
  2. AMLODIPINE [Suspect]
     Active Substance: AMLODIPINE BESYLATE
  3. GLYCOPYRRONIUM BROMIDE [Suspect]
     Active Substance: GLYCOPYRRONIUM
  4. SALBUTAMOL SULFATE [Suspect]
     Active Substance: ALBUTEROL SULFATE
  5. MICARDIS [Suspect]
     Active Substance: TELMISARTAN
  6. PREDNISONE. [Suspect]
     Active Substance: PREDNISONE
  7. LOPERAMIDE [Suspect]
     Active Substance: LOPERAMIDE
  8. CYANOCOBALAMIN. [Concomitant]
     Active Substance: CYANOCOBALAMIN
  9. GABAPENTIN. [Suspect]
     Active Substance: GABAPENTIN

REACTIONS (6)
  - Arthritis [Unknown]
  - Depression [Unknown]
  - Sleep apnoea syndrome [Unknown]
  - Glaucoma [Unknown]
  - Asthma [Unknown]
  - Dyspnoea [Unknown]
